FAERS Safety Report 19974971 (Version 1)
Quarter: 2021Q4

REPORT INFORMATION
  Report Type: Spontaneous
  Country: RU (occurrence: RU)
  Receive Date: 20211020
  Receipt Date: 20211020
  Transmission Date: 20220303
  Serious: Yes (Life-Threatening)
  Sender: FDA-Public Use
  Company Number: RU-SEPTODONT-2021006569

PATIENT
  Age: 29 Year
  Sex: Male

DRUGS (1)
  1. ARTICAINE HYDROCHLORIDE\EPINEPHRINE BITARTRATE [Suspect]
     Active Substance: ARTICAINE HYDROCHLORIDE\EPINEPHRINE BITARTRATE
     Dosage: 1.8 ML (ONCE)
     Route: 004
     Dates: start: 20010414, end: 20010414

REACTIONS (5)
  - Anaphylactic shock [Recovered/Resolved]
  - Loss of consciousness [Recovered/Resolved]
  - Muscle spasms [Recovered/Resolved]
  - Blood pressure immeasurable [Recovered/Resolved]
  - Pulse absent [Recovered/Resolved]

NARRATIVE: CASE EVENT DATE: 20010414
